APPROVED DRUG PRODUCT: PREDNISONE
Active Ingredient: PREDNISONE
Strength: 10MG
Dosage Form/Route: TABLET;ORAL
Application: A088395 | Product #001
Applicant: DURAMED PHARMACEUTICALS INC SUB BARR LABORATORIES INC
Approved: Oct 4, 1983 | RLD: No | RS: No | Type: DISCN